FAERS Safety Report 11644494 (Version 1)
Quarter: 2015Q4

REPORT INFORMATION
  Report Type: Spontaneous
  Country: US (occurrence: US)
  Receive Date: 20151020
  Receipt Date: 20151020
  Transmission Date: 20160304
  Serious: No
  Sender: FDA-Public Use
  Company Number: US-009507513-1510USA007934

PATIENT
  Age: 60 Year
  Sex: Male

DRUGS (1)
  1. BELSOMRA [Suspect]
     Active Substance: SUVOREXANT
     Indication: INSOMNIA
     Dosage: STARTED WITH 5 MG DOSAGE AND PERIODICALLY INCREASED HIS DOSAGE UNTIL HE REACHED 15 MG DOSAGE
     Route: 048
     Dates: start: 201507, end: 2015

REACTIONS (2)
  - Hangover [Unknown]
  - Abnormal dreams [Unknown]

NARRATIVE: CASE EVENT DATE: 2015
